FAERS Safety Report 5063988-4 (Version None)
Quarter: 2006Q3

REPORT INFORMATION
  Report Type: 
  Country: None (occurrence: None)
  Receive Date: 20060703
  Receipt Date: 20050916
  Transmission Date: 20061208
  Serious: No
  Sender: FDA-Public Use
  Company Number: 2005S1009628

PATIENT
  Age: 35 Year
  Sex: Male

DRUGS (9)
  1. CLOZAPINE [Suspect]
     Indication: BIPOLAR DISORDER
     Dosage: SEE IMAGE
     Route: 048
     Dates: start: 20050519, end: 20050908
  2. CLOZAPINE [Suspect]
     Indication: SCHIZOAFFECTIVE DISORDER
     Dosage: SEE IMAGE
     Route: 048
     Dates: start: 20050519, end: 20050908
  3. CLOZAPINE [Suspect]
     Indication: BIPOLAR DISORDER
     Dosage: SEE IMAGE
     Route: 048
     Dates: start: 20050519, end: 20050908
  4. CLOZAPINE [Suspect]
     Indication: SCHIZOAFFECTIVE DISORDER
     Dosage: SEE IMAGE
     Route: 048
     Dates: start: 20050519, end: 20050908
  5. BENZATROPINE [Concomitant]
  6. ARIPIPRAZOLE [Concomitant]
  7. VALPROATE SODIUM [Concomitant]
  8. PAROXETINE HCL [Concomitant]
  9. ALBUTEROL SPIROS [Concomitant]

REACTIONS (1)
  - GRANULOCYTOPENIA [None]
